FAERS Safety Report 5572210-1 (Version None)
Quarter: 2007Q4

REPORT INFORMATION
  Report Type: 
  Country: None (occurrence: None)
  Receive Date: 20071221
  Receipt Date: 20071211
  Transmission Date: 20080405
  Serious: Yes (Other)
  Sender: FDA-Public Use
  Company Number: US-PFIZER INC-2007105053

PATIENT
  Sex: Male

DRUGS (2)
  1. DILANTIN [Suspect]
     Indication: EPILEPSY
  2. PHENYTOIN [Suspect]
     Indication: EPILEPSY

REACTIONS (6)
  - ANTICONVULSANT DRUG LEVEL DECREASED [None]
  - ARTHRALGIA [None]
  - COORDINATION ABNORMAL [None]
  - FALL [None]
  - PARAESTHESIA [None]
  - SKIN DISCOLOURATION [None]
